FAERS Safety Report 7352042-4 (Version None)
Quarter: 2011Q1

REPORT INFORMATION
  Report Type: 
  Country: None (occurrence: None)
  Receive Date: 20110315
  Receipt Date: 20110301
  Transmission Date: 20110831
  Serious: Yes (Death)
  Sender: FDA-Public Use
  Company Number: GB-MYLANLABS-2011S1004303

PATIENT
  Age: 39 Year
  Sex: Male

DRUGS (4)
  1. HEPARIN [Suspect]
     Route: 065
  2. ETOPOSIDE [Suspect]
     Indication: TERATOMA OF TESTIS
     Route: 042
  3. CARBOPLATIN [Suspect]
     Indication: TERATOMA OF TESTIS
     Route: 042
  4. IFOSFAMIDE [Suspect]
     Indication: TERATOMA OF TESTIS
     Route: 042

REACTIONS (4)
  - HAEMORRHAGE INTRACRANIAL [None]
  - THROMBOCYTOPENIA [None]
  - RENAL TUBULAR DISORDER [None]
  - RENAL FAILURE [None]
